FAERS Safety Report 7208184-7 (Version None)
Quarter: 2010Q4

REPORT INFORMATION
  Report Type: 
  Country: None (occurrence: None)
  Receive Date: 20101222
  Receipt Date: 20101214
  Transmission Date: 20110411
  Serious: Yes (Hospitalization, Other)
  Sender: FDA-Public Use
  Company Number: AXC-2010-000352

PATIENT
  Age: 39 Year
  Sex: Male

DRUGS (3)
  1. MESALAMINE [Suspect]
     Indication: COLITIS ULCERATIVE
  2. PREDNISONE TAB [Concomitant]
  3. METRONIDAZOLE [Concomitant]

REACTIONS (18)
  - ABDOMINAL PAIN [None]
  - ABDOMINAL TENDERNESS [None]
  - BLOOD PRESSURE DECREASED [None]
  - COLITIS ULCERATIVE [None]
  - CONDITION AGGRAVATED [None]
  - DIARRHOEA HAEMORRHAGIC [None]
  - DYSARTHRIA [None]
  - FACIAL PARESIS [None]
  - HAEMATOCRIT DECREASED [None]
  - HAEMOGLOBIN DECREASED [None]
  - HEART RATE INCREASED [None]
  - HEMIPARESIS [None]
  - HYPERCOAGULATION [None]
  - INTRACARDIAC THROMBUS [None]
  - NAUSEA [None]
  - TREATMENT NONCOMPLIANCE [None]
  - VOMITING [None]
  - WHITE BLOOD CELL COUNT INCREASED [None]
